FAERS Safety Report 14718563 (Version 1)
Quarter: 2018Q2

REPORT INFORMATION
  Report Type: Spontaneous
  Country: JP (occurrence: JP)
  Receive Date: 20180404
  Receipt Date: 20180404
  Transmission Date: 20180711
  Serious: Yes (Death, Hospitalization, Other)
  Sender: FDA-Public Use
  Company Number: JP-BRISTOL-MYERS SQUIBB COMPANY-BMS-2018-029955

PATIENT
  Age: 56 Year
  Sex: Male

DRUGS (1)
  1. NIVOLUMAB [Suspect]
     Active Substance: NIVOLUMAB
     Indication: LUNG ADENOCARCINOMA
     Dosage: 3 MG/KG, Q2WK
     Route: 042
     Dates: start: 201607

REACTIONS (6)
  - Pneumonia fungal [Unknown]
  - Febrile neutropenia [Unknown]
  - Malignant neoplasm progression [Fatal]
  - Pancytopenia [Not Recovered/Not Resolved]
  - Device related infection [Unknown]
  - Pneumonia bacterial [Recovered/Resolved]
